FAERS Safety Report 20541764 (Version 1)
Quarter: 2022Q1

REPORT INFORMATION
  Report Type: Spontaneous
  Country: BR (occurrence: BR)
  Receive Date: 20220302
  Receipt Date: 20220302
  Transmission Date: 20220423
  Serious: Yes (Other)
  Sender: FDA-Public Use
  Company Number: BR-JNJFOC-20211126117

PATIENT
  Age: 34 Year
  Sex: Male

DRUGS (1)
  1. RISPERIDONE [Suspect]
     Active Substance: RISPERIDONE
     Indication: Schizoaffective disorder
     Route: 065

REACTIONS (6)
  - Suicidal ideation [Unknown]
  - Hallucination, auditory [Unknown]
  - Paranoia [Unknown]
  - Akathisia [Unknown]
  - Mania [Unknown]
  - Treatment noncompliance [Unknown]
